FAERS Safety Report 24028415 (Version 3)
Quarter: 2025Q1

REPORT INFORMATION
  Report Type: Report from Study
  Country: US (occurrence: US)
  Receive Date: 20240628
  Receipt Date: 20250128
  Transmission Date: 20250408
  Serious: No
  Sender: ASTELLAS
  Company Number: US-ASTELLAS-2024US018075

PATIENT
  Age: 56 Year
  Sex: Female

DRUGS (1)
  1. FEZOLINETANT [Suspect]
     Active Substance: FEZOLINETANT
     Indication: Hot flush
     Dosage: 45 MG, ONCE DAILY
     Route: 048
     Dates: start: 20240226, end: 20240528

REACTIONS (2)
  - Blood alkaline phosphatase increased [Not Recovered/Not Resolved]
  - Alanine aminotransferase increased [Not Recovered/Not Resolved]

NARRATIVE: CASE EVENT DATE: 20240520
